FAERS Safety Report 22610172 (Version 2)
Quarter: 2023Q2

REPORT INFORMATION
  Report Type: Other
  Country: US (occurrence: None)
  Receive Date: 20230616
  Receipt Date: 20230620
  Transmission Date: 20230722
  Serious: Yes (Other)
  Sender: FDA-Public Use
  Company Number: US-ROCHE-3367491

PATIENT
  Age: 49 Year
  Sex: Female
  Weight: 79.45 kg

DRUGS (22)
  1. XOLAIR [Suspect]
     Active Substance: OMALIZUMAB
     Indication: Angioedema
     Dosage: INJECTION ADMINISTERED SUBCUTANEOUS IN LEFT UPPER ARM X1 INJECTION ADMINISTERED SUBCUTANEOUS IN RIGH
     Route: 058
  2. XOLAIR [Suspect]
     Active Substance: OMALIZUMAB
  3. XOLAIR [Suspect]
     Active Substance: OMALIZUMAB
     Indication: Idiopathic urticaria
  4. XOLAIR [Suspect]
     Active Substance: OMALIZUMAB
  5. XOLAIR [Suspect]
     Active Substance: OMALIZUMAB
     Indication: Mast cell activation syndrome
  6. XOLAIR [Suspect]
     Active Substance: OMALIZUMAB
  7. XOLAIR [Suspect]
     Active Substance: OMALIZUMAB
     Indication: Asthma
  8. XOLAIR [Suspect]
     Active Substance: OMALIZUMAB
  9. XOLAIR [Suspect]
     Active Substance: OMALIZUMAB
     Indication: Abdominal pain
  10. XOLAIR [Suspect]
     Active Substance: OMALIZUMAB
  11. XOLAIR [Suspect]
     Active Substance: OMALIZUMAB
     Indication: Arthralgia
  12. XOLAIR [Suspect]
     Active Substance: OMALIZUMAB
  13. XOLAIR [Suspect]
     Active Substance: OMALIZUMAB
     Indication: Chronic fatigue syndrome
  14. XOLAIR [Suspect]
     Active Substance: OMALIZUMAB
  15. PLAQUENIL [Concomitant]
     Active Substance: HYDROXYCHLOROQUINE SULFATE
  16. DULOXETINE HYDROCHLORIDE [Concomitant]
     Active Substance: DULOXETINE HYDROCHLORIDE
  17. BENADRYL [Concomitant]
     Active Substance: DIPHENHYDRAMINE HYDROCHLORIDE
  18. EPIPEN [Concomitant]
     Active Substance: EPINEPHRINE
     Dosage: USE AS DIRECTED FOR ALLERGIC REACTION
  19. PEPCID [Concomitant]
     Active Substance: FAMOTIDINE
  20. CALCIUM CARBONATE [Concomitant]
     Active Substance: CALCIUM CARBONATE
  21. CYMBALTA [Concomitant]
     Active Substance: DULOXETINE HYDROCHLORIDE
  22. MELATONIN [Concomitant]
     Active Substance: MELATONIN

REACTIONS (17)
  - Cognitive disorder [Unknown]
  - Brain fog [Unknown]
  - Fatigue [Unknown]
  - Gastrointestinal disorder [Unknown]
  - Illness [Unknown]
  - Cough [Unknown]
  - Angioedema [Unknown]
  - Mast cell activation syndrome [Unknown]
  - Sedation [Unknown]
  - Swelling [Unknown]
  - Abdominal pain [Unknown]
  - Bone pain [Unknown]
  - Pharyngeal hypoaesthesia [Unknown]
  - Abdominal distension [Unknown]
  - Rash [Unknown]
  - Arthralgia [Unknown]
  - Diarrhoea [Unknown]
